FAERS Safety Report 7689131-0 (Version None)
Quarter: 2011Q3

REPORT INFORMATION
  Report Type: 
  Country: None (occurrence: None)
  Receive Date: 20110817
  Receipt Date: 20110808
  Transmission Date: 20111222
  Serious: Yes (Other)
  Sender: FDA-Public Use
  Company Number: GB-JNJFOC-20110804580

PATIENT
  Age: 49 Year
  Sex: Male

DRUGS (3)
  1. REMICADE [Suspect]
     Indication: BEHCET'S SYNDROME
     Route: 042
     Dates: start: 20041015, end: 20060508
  2. HYDROXYCHLOROQUINE [Concomitant]
     Dates: start: 20040915
  3. HYDROXYCHLOROQUINE [Concomitant]
     Dates: start: 20080428

REACTIONS (1)
  - RECTAL CANCER [None]
